FAERS Safety Report 6030259-9 (Version None)
Quarter: 2008Q4

REPORT INFORMATION
  Report Type: 
  Country: None (occurrence: None)
  Receive Date: 20081222
  Receipt Date: 20081028
  Transmission Date: 20090506
  Serious: Yes (Other)
  Sender: FDA-Public Use
  Company Number: US-WYE-H06614108

PATIENT
  Age: 71 Year
  Sex: Female
  Weight: 88.53 kg

DRUGS (5)
  1. PRISTIQ [Suspect]
     Indication: ANXIETY
     Dosage: 50 MG 1X PER 1 DAY, ORAL
     Route: 048
     Dates: start: 20080801
  2. CLONAZEPAM [Concomitant]
  3. DIOVAN [Concomitant]
  4. ATENOLOL [Concomitant]
  5. .. [Concomitant]

REACTIONS (3)
  - CONDITION AGGRAVATED [None]
  - HEADACHE [None]
  - HYPERTENSION [None]
